FAERS Safety Report 5199100-0 (Version None)
Quarter: 2006Q4

REPORT INFORMATION
  Report Type: 
  Country: None (occurrence: None)
  Receive Date: 20060919
  Receipt Date: 20060719
  Transmission Date: 20070319
  Serious: Yes (Other)
  Sender: FDA-Public Use
  Company Number: HQWYE326325JUL06

PATIENT
  Age: 60 Year
  Sex: Female
  Weight: 136.2 kg

DRUGS (1)
  1. ADVIL [Suspect]
     Indication: PAIN
     Dosage: 3 CAPSULES DAILY, ORAL
     Route: 048

REACTIONS (2)
  - BURNING SENSATION [None]
  - LIP DISORDER [None]
